FAERS Safety Report 7494219-3 (Version None)
Quarter: 2011Q2

REPORT INFORMATION
  Report Type: 
  Country: None (occurrence: None)
  Receive Date: 20110520
  Receipt Date: 20101223
  Transmission Date: 20111010
  Serious: Yes (Other)
  Sender: FDA-Public Use
  Company Number: US-BAYER-201017219NA

PATIENT
  Age: 27 Year
  Sex: Female
  Weight: 61.364 kg

DRUGS (24)
  1. RELPAX [Concomitant]
     Indication: MIGRAINE
     Dates: start: 20071001
  2. LORAZEPAM [Concomitant]
     Indication: DYSPEPSIA
     Dates: start: 20071001
  3. PRILOSEC [Concomitant]
     Indication: SECRETION DISCHARGE
  4. PRILOSEC [Concomitant]
     Indication: OROPHARYNGEAL PAIN
  5. MYLANTA [Concomitant]
     Indication: SECRETION DISCHARGE
  6. MYLANTA [Concomitant]
  7. PEPTO-BISMOL [Concomitant]
     Indication: IRRITABLE BOWEL SYNDROME
  8. HYOSCYAMINE [Concomitant]
     Indication: OROPHARYNGEAL PAIN
  9. HYOSCYAMINE [Concomitant]
     Indication: DYSPEPSIA
  10. ACYCLOVIR [Concomitant]
  11. CEFUROXIME [Concomitant]
  12. NULYTELY [Concomitant]
  13. GAS X [Concomitant]
     Indication: SECRETION DISCHARGE
  14. HYDROCODONE BITARTRATE AND ACETAMINOPHEN [Concomitant]
  15. DOXEPIN [Concomitant]
  16. YAZ [Suspect]
     Indication: DYSMENORRHOEA
     Route: 048
     Dates: start: 20071001, end: 20080501
  17. YAZ [Suspect]
     Indication: ACNE
  18. ZOLPIDEM [Concomitant]
  19. PRILOSEC [Concomitant]
     Indication: ABDOMINAL PAIN UPPER
  20. GAS X [Concomitant]
     Indication: DYSPEPSIA
  21. PROTONIX [Concomitant]
     Indication: GASTROOESOPHAGEAL REFLUX DISEASE
  22. GAS X [Concomitant]
  23. MYLANTA [Concomitant]
     Indication: DYSPEPSIA
  24. HYOSCYAMINE [Concomitant]
     Indication: SECRETION DISCHARGE

REACTIONS (3)
  - ENDOMETRIOSIS [None]
  - CHOLECYSTECTOMY [None]
  - HEPATOSPLENOMEGALY [None]
